FAERS Safety Report 24687569 (Version 1)
Quarter: 2024Q4

REPORT INFORMATION
  Report Type: Spontaneous
  Country: US (occurrence: None)
  Receive Date: 20241202
  Receipt Date: 20241202
  Transmission Date: 20250114
  Serious: Yes (Disabling, Other)
  Sender: Public
  Company Number: None

PATIENT
  Age: 43 Year
  Sex: Female
  Weight: 104.85 kg

DRUGS (6)
  1. OZEMPIC [Suspect]
     Active Substance: SEMAGLUTIDE
     Indication: Diabetes mellitus
     Dosage: OTHER QUANTITY : 1 INJECTION(S);?
     Route: 058
     Dates: start: 20230529, end: 20241118
  2. LOSARTAN [Concomitant]
     Active Substance: LOSARTAN
  3. IRON [Concomitant]
     Active Substance: IRON
  4. VITAMIN D3 [Concomitant]
     Active Substance: CHOLECALCIFEROL
  5. B12 [Concomitant]
  6. ALIGN [Concomitant]
     Active Substance: BIFIDOBACTERIUM LONGUM SUBSP. INFANTIS

REACTIONS (5)
  - Palpitations [None]
  - Blood pressure increased [None]
  - Chest pain [None]
  - Dizziness [None]
  - Dizziness [None]

NARRATIVE: CASE EVENT DATE: 20241118
